FAERS Safety Report 15811314 (Version 2)
Quarter: 2019Q1

REPORT INFORMATION
  Report Type: Spontaneous
  Country: US (occurrence: US)
  Receive Date: 20190111
  Receipt Date: 20190125
  Transmission Date: 20190417
  Serious: No
  Sender: FDA-Public Use
  Company Number: US-ASTRAZENECA-2018SE12038

PATIENT
  Sex: Male
  Weight: 87.1 kg

DRUGS (4)
  1. TUDORZA PRESSAIR [Suspect]
     Active Substance: ACLIDINIUM BROMIDE
     Indication: BRONCHITIS
     Route: 055
     Dates: start: 2013
  2. TUDORZA PRESSAIR [Suspect]
     Active Substance: ACLIDINIUM BROMIDE
     Indication: CHRONIC OBSTRUCTIVE PULMONARY DISEASE
     Dosage: TAKES ONE PUFF DAILY, UNLESS HE FEELS HE NEEDS TO TAKE ANOTHER DOSE
     Route: 055
     Dates: start: 2013
  3. TUDORZA PRESSAIR [Suspect]
     Active Substance: ACLIDINIUM BROMIDE
     Indication: CHRONIC OBSTRUCTIVE PULMONARY DISEASE
     Route: 055
     Dates: start: 2013
  4. TUDORZA PRESSAIR [Suspect]
     Active Substance: ACLIDINIUM BROMIDE
     Indication: BRONCHITIS
     Dosage: TAKES ONE PUFF DAILY, UNLESS HE FEELS HE NEEDS TO TAKE ANOTHER DOSE
     Route: 055
     Dates: start: 2013

REACTIONS (6)
  - Dysgeusia [Unknown]
  - Wrong technique in device usage process [Unknown]
  - Intentional product misuse [Unknown]
  - Device malfunction [Unknown]
  - Product dose omission [Unknown]
  - Lung disorder [Recovered/Resolved]
